FAERS Safety Report 7121091-3 (Version None)
Quarter: 2010Q4

REPORT INFORMATION
  Report Type: 
  Country: None (occurrence: None)
  Receive Date: 20101124
  Receipt Date: 20100503
  Transmission Date: 20110411
  Serious: No
  Sender: FDA-Public Use
  Company Number: US-PFIZER INC-2010056260

PATIENT
  Sex: Female

DRUGS (1)
  1. TIKOSYN [Suspect]
     Indication: CARDIAC FIBRILLATION
     Dosage: 500 MCG, 2X/DAY
     Route: 048
     Dates: start: 20090101

REACTIONS (1)
  - INCONTINENCE [None]
